FAERS Safety Report 8793838 (Version 2)
Quarter: 2012Q4

REPORT INFORMATION
  Report Type: Report from Study
  Country: JP (occurrence: JP)
  Receive Date: 20120918
  Receipt Date: 20121025
  Transmission Date: 20130627
  Serious: Yes (Other)
  Sender: FDA-Public Use
  Company Number: JP-009507513-2012SP034488

PATIENT
  Age: 74 Year
  Sex: Male
  Weight: 58 kg

DRUGS (11)
  1. PEGINTRON [Suspect]
     Indication: HEPATITIS C
     Dosage: 0.69 microgram per kilogram, QW
     Route: 058
     Dates: start: 20120529, end: 20120605
  2. PEGINTRON [Suspect]
     Dosage: 0.69 Microgram per kilogram, qw
     Route: 058
     Dates: end: 20120608
  3. REBETOL [Suspect]
     Indication: HEPATITIS C
     Dosage: 600 mg, qd
     Route: 048
     Dates: start: 20120529, end: 20120605
  4. REBETOL [Suspect]
     Dosage: 400 mg, qd
     Route: 048
     Dates: start: 20120606, end: 20120608
  5. TELAVIC [Suspect]
     Indication: HEPATITIS C
     Dosage: 1500 mg, qd
     Route: 048
     Dates: start: 20120529, end: 20120608
  6. LEVOTOMIN (LEVOMEPROMAZINE HYDROCHLORIDE) [Concomitant]
     Indication: SCHIZOPHRENIA
     Dosage: UPDATE(03JUL2012)
     Route: 048
  7. ISOMYTAL [Concomitant]
     Indication: SCHIZOPHRENIA
     Dosage: UPDATE(03JUL2012) FORMULATION: POR
     Route: 048
  8. BROVARIN [Concomitant]
     Indication: SCHIZOPHRENIA
     Dosage: UPDATE(03JUL2012) FORMULATION: POR
     Route: 048
  9. HALRACK [Concomitant]
     Indication: SCHIZOPHRENIA
     Dosage: UPDATE(03JUL2012)
     Route: 048
  10. AMINOLEBAN [Concomitant]
     Indication: HEPATIC FAILURE
     Dosage: 500 ml, qd
     Route: 042
     Dates: start: 20120607, end: 20120613
  11. VEGETAMIN A [Concomitant]
     Indication: SCHIZOPHRENIA
     Dosage: 1 DF, qd
     Route: 048

REACTIONS (4)
  - Restlessness [Recovering/Resolving]
  - Hepatic encephalopathy [Not Recovered/Not Resolved]
  - Dizziness [Recovering/Resolving]
  - Neutrophil count decreased [Not Recovered/Not Resolved]
